FAERS Safety Report 9917047 (Version 6)
Quarter: 2016Q2

REPORT INFORMATION
  Report Type: Report from Study
  Country: US (occurrence: US)
  Receive Date: 20140221
  Receipt Date: 20160520
  Transmission Date: 20160815
  Serious: Yes (Hospitalization, Other)
  Sender: FDA-Public Use
  Company Number: US-ACTELION-A-US2014-94874

PATIENT
  Age: 60 Year
  Sex: Female

DRUGS (3)
  1. TRACLEER [Suspect]
     Active Substance: BOSENTAN
     Dosage: UNK
     Route: 048
  2. TRACLEER [Suspect]
     Active Substance: BOSENTAN
     Indication: PULMONARY ARTERIAL HYPERTENSION
     Dosage: UNK
     Route: 048
  3. COUMADIN [Concomitant]
     Active Substance: WARFARIN SODIUM

REACTIONS (9)
  - Diabetes mellitus [Unknown]
  - Fall [Unknown]
  - Blood glucose decreased [Unknown]
  - Malaise [Unknown]
  - Drug dose omission [Not Recovered/Not Resolved]
  - Contusion [Unknown]
  - Influenza [Unknown]
  - Syncope [Unknown]
  - Diabetic complication [Unknown]

NARRATIVE: CASE EVENT DATE: 20141016
